FAERS Safety Report 5132839-1 (Version None)
Quarter: 2006Q4

REPORT INFORMATION
  Report Type: 
  Country: None (occurrence: None)
  Receive Date: 20061023
  Receipt Date: 20060612
  Transmission Date: 20070319
  Serious: Yes (Hospitalization, Other)
  Sender: FDA-Public Use
  Company Number: PHEH2006US07675

PATIENT
  Age: 77 Year
  Sex: Female

DRUGS (3)
  1. GLEEVEC [Suspect]
     Indication: GASTROINTESTINAL STROMAL TUMOUR
     Dosage: 1200 MG, QD
     Route: 048
     Dates: start: 19990101, end: 20060301
  2. KLOR-CON [Concomitant]
     Dosage: 40 MEQ, UNK
     Route: 048
  3. MAALOX /USA/ [Concomitant]
     Dosage: 30 ML, QID
     Route: 048

REACTIONS (5)
  - ADENOCARCINOMA [None]
  - BLOOD CREATININE INCREASED [None]
  - RENAL FAILURE CHRONIC [None]
  - SPLENECTOMY [None]
  - SPLENIC RUPTURE [None]
